FAERS Safety Report 9531377 (Version 1)
Quarter: 2013Q3

REPORT INFORMATION
  Report Type: Spontaneous
  Country: US (occurrence: None)
  Receive Date: 20130916
  Receipt Date: 20130916
  Transmission Date: 20140515
  Serious: Yes (Hospitalization)
  Sender: FDA-Public Use
  Company Number: None

PATIENT
  Age: 31 Year
  Sex: Female
  Weight: 65.77 kg

DRUGS (1)
  1. TOPIRAMATE [Suspect]
     Indication: MIGRAINE
     Dosage: 2 TABLETS AT BEDTIME TAKEN BY MOUTH
     Route: 048
     Dates: start: 20130901, end: 20130907

REACTIONS (7)
  - Neck pain [None]
  - Tension headache [None]
  - Eye pain [None]
  - Hyperaesthesia [None]
  - Musculoskeletal stiffness [None]
  - Vision blurred [None]
  - Crying [None]
